FAERS Safety Report 9889690 (Version 1)
Quarter: 2014Q1

REPORT INFORMATION
  Report Type: Spontaneous
  Country: CL (occurrence: CL)
  Receive Date: 20140211
  Receipt Date: 20140211
  Transmission Date: 20141002
  Serious: Yes (Death)
  Sender: FDA-Public Use
  Company Number: CL-PFIZER INC-2014035658

PATIENT
  Age: 83 Year
  Sex: Female

DRUGS (5)
  1. XALATAN [Suspect]
     Indication: GLAUCOMA
     Dosage: 1 DROP FOR EACH EYE, 2X/DAY
     Route: 047
     Dates: start: 2009, end: 2012
  2. XALACOM [Suspect]
     Indication: GLAUCOMA
     Dosage: 1 DROP FOR EACH EYE, 2X/DAY
     Route: 047
     Dates: start: 2013
  3. GLIBENCLAMIDE [Concomitant]
  4. NIFEDIPINE [Concomitant]
  5. LOSARTAN [Concomitant]

REACTIONS (2)
  - Death [Fatal]
  - Inappropriate schedule of drug administration [Unknown]
